FAERS Safety Report 15230665 (Version 4)
Quarter: 2019Q2

REPORT INFORMATION
  Report Type: Spontaneous
  Country: US (occurrence: US)
  Receive Date: 20180802
  Receipt Date: 20190424
  Transmission Date: 20190711
  Serious: Yes (Life-Threatening, Hospitalization, Disabling, Other)
  Sender: FDA-Public Use
  Company Number: US-SA-2018SA208489

PATIENT
  Age: 41 Year
  Sex: Female

DRUGS (2)
  1. LEMTRADA [Suspect]
     Active Substance: ALEMTUZUMAB
     Dosage: UNK
     Route: 041
     Dates: start: 20160118
  2. LEMTRADA [Suspect]
     Active Substance: ALEMTUZUMAB
     Dosage: UNK
     Route: 041
     Dates: start: 20170314

REACTIONS (5)
  - Activated partial thromboplastin time prolonged [Unknown]
  - Wheelchair user [Unknown]
  - Anaemia [Unknown]
  - Anti factor VIII antibody test [Recovered/Resolved]
  - Uterine haemorrhage [Unknown]

NARRATIVE: CASE EVENT DATE: 20180102
